FAERS Safety Report 16667103 (Version 12)
Quarter: 2022Q3

REPORT INFORMATION
  Report Type: Report from Study
  Country: DE (occurrence: None)
  Receive Date: 20190805
  Receipt Date: 20220812
  Transmission Date: 20221026
  Serious: Yes (Hospitalization)
  Sender: FDA-Public Use
  Company Number: DE-ROCHE-2324336

PATIENT
  Age: 48 Year
  Sex: Female
  Weight: 85.5 kg

DRUGS (12)
  1. PLACEBO [Suspect]
     Active Substance: UNSPECIFIED INGREDIENT
     Indication: HER2 positive breast cancer
     Dosage: DATE OF MOST RECENT DOSE OF BLINDED ATEZOLIZUMAB PRIOR TO EVENT ONSET: 24/APR/2019
     Route: 042
     Dates: start: 20190220
  2. DOXORUBICIN [Suspect]
     Active Substance: DOXORUBICIN
     Indication: HER2 positive breast cancer
     Dosage: DATE OF MOST RECENT DOSE (116MG, 115.8) OF DOXORUBICIN PRIOR TO EVENT ONSET: 10/APR/2019
     Route: 042
     Dates: start: 20190220
  3. TRASTUZUMAB [Suspect]
     Active Substance: TRASTUZUMAB
     Indication: HER2 positive breast cancer
     Dosage: DATE OF MOST RECENT DOSE OF TRASTUZUMAB PRIOR TO SAE AND AE: 04/JUL/2019, 513 MG
     Route: 041
     Dates: start: 20190424
  4. TRASTUZUMAB [Suspect]
     Active Substance: TRASTUZUMAB
     Route: 042
     Dates: start: 20190424
  5. TRASTUZUMAB [Suspect]
     Active Substance: TRASTUZUMAB
     Route: 042
     Dates: start: 20191007
  6. PERTUZUMAB [Suspect]
     Active Substance: PERTUZUMAB
     Indication: HER2 positive breast cancer
     Dosage: DATE OF MOST RECENT DOSE OF PERTUZUMAB PRIOR TO EVENT ONSET: 24/APR/2019?DATE OF MOST RECENT DOSE (4
     Route: 042
     Dates: start: 20190424
  7. PACLITAXEL [Suspect]
     Active Substance: PACLITAXEL
     Indication: HER2 positive breast cancer
     Dosage: DATE OF MOST RECENT  (154MG) DOSE OF PACLITAXEL PRIOR TO EVENT ONSET: 08/MAY/2019?DATE OF MOST RECEN
     Route: 042
     Dates: start: 20190424
  8. CYCLOPHOSPHAMIDE [Suspect]
     Active Substance: CYCLOPHOSPHAMIDE
     Indication: HER2 positive breast cancer
     Dosage: DATE OF MOST RECENT DOSE (1158MG) OF CYCLOPHOSPHAMIDE PRIOR TO AE/SAE: 10/APR/2019
     Route: 042
     Dates: start: 20190220
  9. MINOCYCLINE [Concomitant]
     Active Substance: MINOCYCLINE HYDROCHLORIDE
     Indication: Rosacea
     Route: 048
     Dates: start: 20190307
  10. IBUPROFEN [Concomitant]
     Active Substance: IBUPROFEN
     Indication: Pain in extremity
     Route: 048
     Dates: start: 20190427, end: 20190428
  11. IBUPROFEN [Concomitant]
     Active Substance: IBUPROFEN
     Indication: Pyrexia
     Dates: start: 20190519
  12. IMODIUM [Concomitant]
     Active Substance: LOPERAMIDE HYDROCHLORIDE
     Indication: Diarrhoea
     Dates: start: 20190613, end: 20190709

REACTIONS (3)
  - Pneumonitis [Recovered/Resolved]
  - Dyspnoea [Recovered/Resolved]
  - Dyspnoea exertional [Recovered/Resolved]

NARRATIVE: CASE EVENT DATE: 20190512
